FAERS Safety Report 5822058-5 (Version None)
Quarter: 2008Q3

REPORT INFORMATION
  Report Type: 
  Country: None (occurrence: None)
  Receive Date: 20080722
  Receipt Date: 20080722
  Transmission Date: 20090109
  Serious: No
  Sender: FDA-Public Use
  Company Number: None

PATIENT
  Age: 23 Year
  Sex: Male
  Weight: 67.586 kg

DRUGS (11)
  1. SINGULAIR [Suspect]
     Indication: ASTHMA
     Dosage: 10MG DAILY PO
     Route: 048
  2. SINGULAIR [Suspect]
     Indication: RHINITIS ALLERGIC
     Dosage: 10MG DAILY PO
     Route: 048
  3. QVAR 40 [Concomitant]
  4. PROAIR HFA [Concomitant]
  5. BECONASE AQ [Concomitant]
  6. MINOCIN [Concomitant]
  7. PHISODERM [Concomitant]
  8. LORATADINE [Concomitant]
  9. BACTROBAN [Concomitant]
  10. TRIAMCINOLONE ACETONIDE [Concomitant]
  11. VISINE ADVANCED RELIEF [Concomitant]

REACTIONS (2)
  - DEPRESSION [None]
  - UNEVALUABLE EVENT [None]
